FAERS Safety Report 24608769 (Version 1)
Quarter: 2024Q4

REPORT INFORMATION
  Report Type: Report from Study
  Country: NL (occurrence: NL)
  Receive Date: 20241112
  Receipt Date: 20241112
  Transmission Date: 20250115
  Serious: Yes (Other)
  Sender: BIOVITRUM
  Company Number: NL-AstraZeneca-CH-00734586A

PATIENT
  Sex: Female
  Weight: 4.57 kg

DRUGS (1)
  1. SYNAGIS [Suspect]
     Active Substance: PALIVIZUMAB
     Indication: Glycogen storage disease type IV
     Dosage: 15 MILLIGRAM/KILOGRAM, QMONTH
     Route: 030

REACTIONS (1)
  - Pulmonary artery stenosis [Unknown]

NARRATIVE: CASE EVENT DATE: 20240101
